FAERS Safety Report 5500596-2 (Version None)
Quarter: 2007Q4

REPORT INFORMATION
  Report Type: 
  Country: None (occurrence: None)
  Receive Date: 20071029
  Receipt Date: 20071023
  Transmission Date: 20080405
  Serious: Yes (Hospitalization)
  Sender: FDA-Public Use
  Company Number: SE-AVENTIS-200717948GDDC

PATIENT
  Age: 46 Year
  Sex: Female

DRUGS (5)
  1. TAXOTERE [Suspect]
     Indication: BREAST CANCER
     Dosage: DOSE: UNK
     Route: 042
     Dates: start: 20070810, end: 20070810
  2. OMEPRAZOLE [Concomitant]
  3. BETAPRED [Concomitant]
     Indication: BREAST CANCER
     Dates: start: 20070820
  4. ZOFRAN [Concomitant]
     Indication: BREAST CANCER
  5. NEUPOGEN [Concomitant]
     Dosage: DOSE: 0.6 ON DAY 5-12 POST DOCETAXEL

REACTIONS (4)
  - DYSAESTHESIA [None]
  - FAECAL INCONTINENCE [None]
  - POLYNEUROPATHY [None]
  - URINARY INCONTINENCE [None]
